FAERS Safety Report 17022489 (Version 2)
Quarter: 2019Q4

REPORT INFORMATION
  Report Type: Spontaneous
  Country: US (occurrence: US)
  Receive Date: 20191112
  Receipt Date: 20191205
  Transmission Date: 20200122
  Serious: No
  Sender: FDA-Public Use
  Company Number: US-BAUSCH-BL-2019-058080

PATIENT
  Age: 56 Year
  Sex: Female
  Weight: 70.37 kg

DRUGS (1)
  1. PIMECROLIMUS CREAM [Suspect]
     Active Substance: PIMECROLIMUS
     Indication: DERMATITIS
     Dosage: USED AS DIRECTED, SMALL DOT ON HER EYELIDS. STOPPED USING AFTER THAT FIRST USE, ?NIGHT
     Route: 061
     Dates: start: 20191010, end: 20191010

REACTIONS (3)
  - Middle insomnia [Recovered/Resolved]
  - Eyelid irritation [Recovered/Resolved]
  - Swelling of eyelid [Recovered/Resolved]

NARRATIVE: CASE EVENT DATE: 201910
